FAERS Safety Report 4729155-6 (Version None)
Quarter: 2005Q3

REPORT INFORMATION
  Report Type: 
  Country: None (occurrence: None)
  Receive Date: 20050729
  Receipt Date: 20040609
  Transmission Date: 20060218
  Serious: No
  Sender: FDA-Public Use
  Company Number: US-GLAXOSMITHKLINE-A0513979A

PATIENT
  Sex: Female

DRUGS (8)
  1. IMITREX [Suspect]
     Indication: MIGRAINE
     Dosage: 50MG AS REQUIRED
     Route: 048
     Dates: start: 20040301
  2. IMITREX [Suspect]
     Dosage: 1INJ AS REQUIRED
     Route: 058
  3. IMITREX [Suspect]
     Dosage: 1SPR AS REQUIRED
     Route: 045
     Dates: start: 19960101, end: 19960101
  4. AMITRIPTYLINE HCL [Concomitant]
  5. WELLBUTRIN [Concomitant]
  6. LIPITOR [Concomitant]
  7. MICARDIS [Concomitant]
  8. PREMARIN [Concomitant]

REACTIONS (3)
  - DRUG INEFFECTIVE [None]
  - DYSGEUSIA [None]
  - INJECTION SITE PAIN [None]
